FAERS Safety Report 21649701 (Version 1)
Quarter: 2022Q4

REPORT INFORMATION
  Report Type: Spontaneous
  Country: MY (occurrence: MY)
  Receive Date: 20221128
  Receipt Date: 20221128
  Transmission Date: 20230113
  Serious: Yes (Other)
  Sender: FDA-Public Use
  Company Number: MY-002147023-NVSC2022MY262322

PATIENT

DRUGS (1)
  1. ALPELISIB [Suspect]
     Active Substance: ALPELISIB
     Indication: Product used for unknown indication
     Dosage: 250 MG
     Route: 065

REACTIONS (5)
  - Disease progression [Unknown]
  - Rash [Unknown]
  - Hyperglycaemia [Unknown]
  - Diarrhoea [Unknown]
  - Off label use [Unknown]
